FAERS Safety Report 22160304 (Version 1)
Quarter: 2023Q1

REPORT INFORMATION
  Report Type: Spontaneous
  Country: US (occurrence: US)
  Receive Date: 20230331
  Receipt Date: 20230331
  Transmission Date: 20230417
  Serious: Yes (Death, Life-Threatening, Hospitalization, Other)
  Sender: FDA-Public Use
  Company Number: US-MLMSERVICE-20230314-4161642-1

PATIENT
  Age: 65 Year
  Sex: Female

DRUGS (6)
  1. DEXAMETHASONE [Suspect]
     Active Substance: DEXAMETHASONE
     Indication: Cytokine release syndrome
     Dosage: TAPERED OVER 7 DAYS
     Route: 065
  2. DEXAMETHASONE [Suspect]
     Active Substance: DEXAMETHASONE
     Indication: Immune effector cell-associated neurotoxicity syndrome
     Dosage: PROLONGED TAPER
     Route: 048
  3. ANAKINRA [Suspect]
     Active Substance: ANAKINRA
     Indication: Cytokine release syndrome
     Dosage: TAPERED OVER 7 DAYS
     Route: 065
  4. ANAKINRA [Suspect]
     Active Substance: ANAKINRA
     Indication: Immune effector cell-associated neurotoxicity syndrome
  5. TOCILIZUMAB [Suspect]
     Active Substance: TOCILIZUMAB
     Indication: Cytokine release syndrome
     Dosage: 4 DOSES
     Route: 065
  6. TOCILIZUMAB [Suspect]
     Active Substance: TOCILIZUMAB
     Indication: Immune effector cell-associated neurotoxicity syndrome

REACTIONS (7)
  - Sepsis [Fatal]
  - Mucormycosis [Fatal]
  - Pneumonia [Fatal]
  - Cardiac arrest [Fatal]
  - Cerebral infarction [Fatal]
  - Bacteraemia [Fatal]
  - Disseminated mucormycosis [Fatal]
